FAERS Safety Report 21453746 (Version 1)
Quarter: 2022Q4

REPORT INFORMATION
  Report Type: Report from Study
  Country: HU (occurrence: FR)
  Receive Date: 20221013
  Receipt Date: 20221013
  Transmission Date: 20230113
  Serious: Yes (Hospitalization)
  Sender: FDA-Public Use
  Company Number: HU-BAYER-2022A140529

PATIENT
  Age: 50 Year
  Sex: Male

DRUGS (3)
  1. NAPROXEN SODIUM [Suspect]
     Active Substance: NAPROXEN SODIUM
     Indication: Erectile dysfunction
  2. TADALAFIL [Suspect]
     Active Substance: TADALAFIL
     Indication: Erectile dysfunction
  3. SILDENAFIL [Suspect]
     Active Substance: SILDENAFIL
     Indication: Erectile dysfunction

REACTIONS (7)
  - Dizziness [None]
  - Hemiparesis [None]
  - Facial paralysis [None]
  - Product counterfeit [None]
  - Fall [None]
  - Hypotension [None]
  - Ischaemic stroke [None]
